FAERS Safety Report 20142410 (Version 1)
Quarter: 2021Q4

REPORT INFORMATION
  Report Type: Spontaneous
  Country: US (occurrence: US)
  Receive Date: 20211202
  Receipt Date: 20211202
  Transmission Date: 20220303
  Serious: Yes (Other)
  Sender: FDA-Public Use
  Company Number: US-DSPHARMA-2021SUN004481

PATIENT
  Sex: Female
  Weight: 90.703 kg

DRUGS (4)
  1. LATUDA [Suspect]
     Active Substance: LURASIDONE HYDROCHLORIDE
     Indication: Bipolar II disorder
     Dosage: 40 MG, HS
     Route: 048
  2. LATUDA [Suspect]
     Active Substance: LURASIDONE HYDROCHLORIDE
     Indication: Major depression
     Dosage: 40 MG, QOD
     Route: 048
  3. LITHIUM [Concomitant]
     Active Substance: LITHIUM
     Dosage: 600 MG
     Route: 048
  4. LAMICTAL [Concomitant]
     Active Substance: LAMOTRIGINE
     Dosage: 50 MG, BID
     Route: 048

REACTIONS (6)
  - Suicidal ideation [Recovered/Resolved]
  - Crying [Recovered/Resolved]
  - Drug ineffective [Unknown]
  - Fatigue [Recovered/Resolved]
  - Inappropriate schedule of product administration [Unknown]
  - Off label use [Unknown]
